FAERS Safety Report 17268696 (Version 2)
Quarter: 2020Q1

REPORT INFORMATION
  Report Type: Report from Study
  Country: None (occurrence: US)
  Receive Date: 20200114
  Receipt Date: 20200115
  Transmission Date: 20200409
  Serious: Yes (Hospitalization, Other)
  Sender: FDA-Public Use
  Company Number: US-ABBVIE-20K-163-3228263-00

PATIENT
  Sex: Male

DRUGS (1)
  1. VENCLEXTA [Suspect]
     Active Substance: VENETOCLAX
     Indication: PLASMA CELL MYELOMA
     Dosage: WITH FOOD
     Route: 048

REACTIONS (4)
  - Bone disorder [Unknown]
  - Off label use [Unknown]
  - Pneumonia [Unknown]
  - Bone cancer [Unknown]

NARRATIVE: CASE EVENT DATE: 2019
